FAERS Safety Report 4466345-4 (Version None)
Quarter: 2004Q4

REPORT INFORMATION
  Report Type: 
  Country: None (occurrence: None)
  Receive Date: 20041005
  Receipt Date: 20040929
  Transmission Date: 20050328
  Serious: Yes (Hospitalization)
  Sender: FDA-Public Use
  Company Number: FR-GLAXOSMITHKLINE-B0346632A

PATIENT
  Age: 67 Year
  Sex: Female

DRUGS (9)
  1. AUGMENTIN [Suspect]
     Indication: BRONCHITIS
     Route: 048
     Dates: start: 20040719, end: 20040725
  2. BRONCHOKOD [Suspect]
     Indication: BRONCHITIS
     Route: 048
     Dates: start: 20040719, end: 20040725
  3. RHINOFLUIMUCIL [Suspect]
     Indication: BRONCHITIS
     Route: 055
     Dates: start: 20040719, end: 20040725
  4. CLIMAXOL [Concomitant]
  5. LESCOL [Concomitant]
  6. PARIET [Concomitant]
  7. ESBERIVEN FORT [Concomitant]
  8. SELENIUM TRACE METAL ADDITIVE [Concomitant]
  9. NARAMIG [Concomitant]
     Indication: MIGRAINE

REACTIONS (4)
  - HEADACHE [None]
  - INSOMNIA [None]
  - MENINGITIS VIRAL [None]
  - NAUSEA [None]
